FAERS Safety Report 6050951-X (Version None)
Quarter: 2009Q1

REPORT INFORMATION
  Report Type: 
  Country: None (occurrence: None)
  Receive Date: 20090126
  Receipt Date: 20080807
  Transmission Date: 20090719
  Serious: Yes (Other)
  Sender: FDA-Public Use
  Company Number: US-TYCO HEALTHCARE/MALLINCKRODT-T200801273

PATIENT

DRUGS (1)
  1. OPTIRAY 300 [Suspect]
     Dosage: UNK, SINGLE
     Dates: start: 20080724, end: 20080724

REACTIONS (2)
  - DIZZINESS [None]
  - LARYNGEAL OEDEMA [None]
